FAERS Safety Report 9038153 (Version 1)
Quarter: 2013Q1

REPORT INFORMATION
  Report Type: Spontaneous
  Country: US (occurrence: US)
  Receive Date: 20130129
  Receipt Date: 20130129
  Transmission Date: 20140127
  Serious: No
  Sender: FDA-Public Use
  Company Number: US-GLAXOSMITHKLINE-A0968867A

PATIENT
  Age: 59 Year
  Sex: Female
  Weight: 72.7 kg

DRUGS (11)
  1. WELLBUTRIN [Suspect]
     Indication: DEPRESSION
     Route: 048
  2. SIMVASTATIN [Concomitant]
     Indication: BLOOD CHOLESTEROL INCREASED
  3. METFORMIN [Concomitant]
     Indication: DIABETES MELLITUS
  4. NEXIUM [Concomitant]
     Indication: GASTRIC DISORDER
  5. REGLAN [Concomitant]
     Indication: GASTRIC DISORDER
  6. ZOLOFT [Concomitant]
  7. PROZAC [Concomitant]
  8. METOPROLOL [Concomitant]
  9. PLAVIX [Concomitant]
  10. ASPIRIN [Concomitant]
  11. NITROGLYCERIN [Concomitant]

REACTIONS (1)
  - Drug ineffective [Unknown]
